FAERS Safety Report 8911203 (Version 1)
Quarter: 2012Q4

REPORT INFORMATION
  Report Type: 
  Country: BE (occurrence: BE)
  Receive Date: 20121116
  Receipt Date: 20121116
  Transmission Date: 20130627
  Serious: Yes (Death, Other)
  Sender: FDA-Public Use
  Company Number: BE-BRISTOL-MYERS SQUIBB COMPANY-17103045

PATIENT
  Sex: Female

DRUGS (9)
  1. ETOPOSIDE [Suspect]
     Indication: GESTATIONAL TROPHOBLASTIC TUMOUR
     Dosage: 100Mg/m2 on day 8
  2. CISPLATIN [Suspect]
     Indication: GESTATIONAL TROPHOBLASTIC TUMOUR
     Dosage: day 1
     Route: 042
  3. CARBOPLATIN [Suspect]
     Indication: GESTATIONAL TROPHOBLASTIC TUMOUR
     Dosage: AUC 10
  4. PACLITAXEL [Suspect]
     Indication: GESTATIONAL TROPHOBLASTIC TUMOUR
  5. MESNA [Suspect]
     Indication: GESTATIONAL TROPHOBLASTIC TUMOUR
  6. CYCLOPHOSPHAMIDE [Suspect]
     Indication: GESTATIONAL TROPHOBLASTIC TUMOUR
  7. METHOTREXATE [Suspect]
     Indication: GESTATIONAL TROPHOBLASTIC TUMOUR
  8. DACTINOMYCIN [Suspect]
     Indication: GESTATIONAL TROPHOBLASTIC TUMOUR
     Dosage: 8 day and every 14 day.
     Route: 042
  9. PREDNISONE [Suspect]
     Indication: GESTATIONAL TROPHOBLASTIC TUMOUR

REACTIONS (2)
  - Ototoxicity [Unknown]
  - Malignant neoplasm progression [Fatal]
